FAERS Safety Report 16435860 (Version 2)
Quarter: 2025Q3

REPORT INFORMATION
  Report Type: Spontaneous
  Country: EU (occurrence: EU)
  Receive Date: 20190614
  Receipt Date: 20250704
  Transmission Date: 20251021
  Serious: Yes (Other)
  Sender: TEVA
  Company Number: EU-EMA-DD-20190528-AGRAHARI_P-140444

PATIENT

DRUGS (8)
  1. FLUDARABINE [Suspect]
     Active Substance: FLUDARABINE PHOSPHATE
     Indication: Myelodysplastic syndrome
     Route: 065
     Dates: start: 200712
  2. DECITABINE [Suspect]
     Active Substance: DECITABINE
     Indication: Myelodysplastic syndrome
     Route: 042
  3. AZACITIDINE [Suspect]
     Active Substance: AZACITIDINE
     Indication: Myelodysplastic syndrome
     Route: 065
     Dates: start: 200712
  4. BUSULFAN [Suspect]
     Active Substance: BUSULFAN
     Indication: Myelodysplastic syndrome
     Route: 065
     Dates: start: 200712
  5. TREOSULFAN [Suspect]
     Active Substance: TREOSULFAN
     Indication: Myelodysplastic syndrome
     Route: 065
     Dates: start: 201010
  6. CYTARABINE [Suspect]
     Active Substance: CYTARABINE
     Indication: Myelodysplastic syndrome
     Route: 065
     Dates: start: 201712
  7. THYMOGLOBULIN [Suspect]
     Active Substance: LAPINE T-LYMPHOCYTE IMMUNE GLOBULIN
     Indication: Myelodysplastic syndrome
     Route: 065
     Dates: start: 201010
  8. CYCLOPHOSPHAMIDE [Suspect]
     Active Substance: CYCLOPHOSPHAMIDE
     Indication: Myelodysplastic syndrome
     Route: 065
     Dates: start: 200712

REACTIONS (8)
  - Myelodysplastic syndrome [Unknown]
  - Therapy non-responder [Unknown]
  - Oral lichenoid reaction [Unknown]
  - Hypophagia [Unknown]
  - Disease recurrence [Unknown]
  - Chimerism [Recovered/Resolved]
  - Chronic graft versus host disease [Unknown]
  - Thrombocytopenia [Unknown]

NARRATIVE: CASE EVENT DATE: 20130401
